FAERS Safety Report 8092616-9 (Version None)
Quarter: 2012Q1

REPORT INFORMATION
  Report Type: 
  Country: None (occurrence: None)
  Receive Date: 20120128
  Receipt Date: 20110725
  Transmission Date: 20120608
  Serious: No
  Sender: FDA-Public Use
  Company Number: US-ABBOTT-11P-163-0841402-00

PATIENT
  Sex: Female
  Weight: 79.45 kg

DRUGS (3)
  1. CALCIUM AND VITAMIN D [Concomitant]
     Indication: MINERAL SUPPLEMENTATION
  2. HUMIRA [Suspect]
     Indication: RHEUMATOID ARTHRITIS
     Dates: start: 20040101
  3. GABAPENTIN [Concomitant]
     Indication: MUSCLE SPASMS

REACTIONS (1)
  - CONTUSION [None]
